FAERS Safety Report 15925777 (Version 1)
Quarter: 2019Q1

REPORT INFORMATION
  Report Type: Spontaneous
  Country: DE (occurrence: DE)
  Receive Date: 20190206
  Receipt Date: 20190206
  Transmission Date: 20190417
  Serious: Yes (Hospitalization, Congenital Anomaly)
  Sender: FDA-Public Use
  Company Number: DE-TEVA-2019-DE-1007462

PATIENT
  Sex: Female

DRUGS (2)
  1. VALPROATE [Suspect]
     Active Substance: VALPROIC ACID
     Indication: EPILEPSY
     Dosage: 1500 MILLIGRAM DAILY; 1/2-0-1 PER DAY
     Route: 064
  2. LAMOTRIGINE. [Suspect]
     Active Substance: LAMOTRIGINE
     Indication: EPILEPSY
     Dosage: 200 MILLIGRAM DAILY; 1-0-1 PER DAY
     Route: 064

REACTIONS (2)
  - Foetal anticonvulsant syndrome [Recovering/Resolving]
  - Foetal exposure during pregnancy [Unknown]
